FAERS Safety Report 18902041 (Version 3)
Quarter: 2021Q3

REPORT INFORMATION
  Report Type: Spontaneous
  Country: JP (occurrence: JP)
  Receive Date: 20210216
  Receipt Date: 20210714
  Transmission Date: 20211014
  Serious: Yes (Hospitalization, Other)
  Sender: FDA-Public Use
  Company Number: JP-SUNOVION-2020DSP008035

PATIENT
  Age: 40 Year
  Sex: Male
  Weight: 75 kg

DRUGS (10)
  1. AMLODIPINE BESILATE [Concomitant]
     Active Substance: AMLODIPINE BESYLATE
     Indication: HYPERTENSION
     Dosage: 2.5 MG, QD
     Route: 048
  2. XEPLION [Suspect]
     Active Substance: PALIPERIDONE PALMITATE
     Indication: PRODUCT USED FOR UNKNOWN INDICATION
     Dosage: 150 MG, QD
     Route: 030
  3. INDERAL [Concomitant]
     Active Substance: PROPRANOLOL HYDROCHLORIDE
     Indication: HYPERTENSION
     Dosage: 10 MG, BID
     Route: 048
     Dates: end: 20200730
  4. TRIHEXYPHENIDYL HYDROCHLORIDE. [Concomitant]
     Active Substance: TRIHEXYPHENIDYL HYDROCHLORIDE
     Indication: ADVERSE DRUG REACTION
     Dosage: 2 MG, BID
     Route: 048
     Dates: start: 20191107
  5. TRIHEXYPHENIDYL HYDROCHLORIDE. [Concomitant]
     Active Substance: TRIHEXYPHENIDYL HYDROCHLORIDE
     Indication: EXTRAPYRAMIDAL DISORDER
  6. BELSOMRA [Concomitant]
     Active Substance: SUVOREXANT
     Indication: INSOMNIA
     Dosage: 20 MG, QD
     Route: 048
     Dates: start: 20200702, end: 20200705
  7. ESZOPICLONE. [Suspect]
     Active Substance: ESZOPICLONE
     Indication: INSOMNIA
     Dosage: 2 MG, QD
     Route: 048
     Dates: start: 20200611, end: 20200702
  8. E KEPPRA [Concomitant]
     Active Substance: LEVETIRACETAM
     Indication: MOOD SWINGS
     Dosage: 500 MG, BID
     Route: 048
     Dates: start: 20180605
  9. DAYVIGO [Concomitant]
     Active Substance: LEMBOREXANT
     Indication: INSOMNIA
     Dosage: 5 MG, QD
     Route: 048
     Dates: start: 20200706
  10. LATUDA [Suspect]
     Active Substance: LURASIDONE HYDROCHLORIDE
     Indication: SCHIZOPHRENIA
     Dosage: 40 MG, QD
     Route: 048
     Dates: start: 20200625, end: 20200716

REACTIONS (6)
  - Therapeutic response decreased [Unknown]
  - Extrapyramidal disorder [Recovering/Resolving]
  - Withdrawal syndrome [Recovering/Resolving]
  - Oculogyric crisis [Recovering/Resolving]
  - Schizophrenia [Unknown]
  - Sexually inappropriate behaviour [Recovering/Resolving]

NARRATIVE: CASE EVENT DATE: 202006
